FAERS Safety Report 17456327 (Version 1)
Quarter: 2020Q1

REPORT INFORMATION
  Report Type: Spontaneous
  Country: PL (occurrence: PL)
  Receive Date: 20200225
  Receipt Date: 20200225
  Transmission Date: 20200409
  Serious: Yes (Other)
  Sender: FDA-Public Use
  Company Number: PL-FRESENIUS KABI-FK202001812

PATIENT

DRUGS (4)
  1. CEPHALOSPORIN C [Suspect]
     Active Substance: CEPHALOSPORIN C
     Indication: BACTERIAL VAGINOSIS
     Dosage: UNKNOWN
     Route: 064
  2. HEPARIN [Concomitant]
     Active Substance: HEPARIN SODIUM
  3. CLINDAMYCIN. [Suspect]
     Active Substance: CLINDAMYCIN
     Indication: BACTERIAL VAGINOSIS
     Dosage: UNKNOWN
     Route: 064
  4. AMIKACIN. [Suspect]
     Active Substance: AMIKACIN
     Indication: BACTERIAL VAGINOSIS
     Dosage: UNKNOWN
     Route: 064

REACTIONS (3)
  - Staphylococcal infection [Unknown]
  - Gastrointestinal obstruction [Unknown]
  - Foetal exposure during pregnancy [Unknown]
